FAERS Safety Report 9227324 (Version 1)
Quarter: 2013Q2

REPORT INFORMATION
  Report Type: Spontaneous
  Country: US (occurrence: None)
  Receive Date: 20130411
  Receipt Date: 20130411
  Transmission Date: 20140414
  Serious: Yes (Hospitalization)
  Sender: FDA-Public Use
  Company Number: None

PATIENT
  Age: 77 Year
  Sex: Male
  Weight: 70.4 kg

DRUGS (21)
  1. XARELTO [Suspect]
     Indication: THROMBOSIS IN DEVICE
     Dosage: CHRONIC USE 10MG QHS, PO
     Route: 048
  2. CILOSTAZOL [Suspect]
     Dosage: CHRONIC USE 100 MG, BID PO
     Route: 048
  3. ZANTAC [Concomitant]
  4. ZENPEP [Concomitant]
  5. ZOLOFT [Concomitant]
  6. HUMALOG [Concomitant]
  7. CLARITIN [Concomitant]
  8. MVI [Concomitant]
  9. FLONASE [Concomitant]
  10. MUCINEX [Concomitant]
  11. TYLENOL [Concomitant]
  12. PROVENTIL [Concomitant]
  13. ZOFRAN [Concomitant]
  14. METOPROLOL [Concomitant]
  15. PRAVASTATIN [Concomitant]
  16. LANTUS [Concomitant]
  17. PERCOLET [Concomitant]
  18. SENOKET [Concomitant]
  19. MIRALAX [Concomitant]
  20. TRAZODONE [Concomitant]
  21. KLONOPIN [Concomitant]

REACTIONS (1)
  - Gastric ulcer [None]
